FAERS Safety Report 10059528 (Version 2)
Quarter: 2014Q2

REPORT INFORMATION
  Report Type: Spontaneous
  Country: US (occurrence: US)
  Receive Date: 20140404
  Receipt Date: 20140515
  Transmission Date: 20141212
  Serious: Yes (Other)
  Sender: FDA-Public Use
  Company Number: US-AMGEN INC.-USASP2014023158

PATIENT
  Age: 77 Year
  Sex: Female

DRUGS (6)
  1. ENBREL [Suspect]
     Indication: RHEUMATOID ARTHRITIS
     Dosage: 50 MG, QWK
     Route: 065
     Dates: start: 2005
  2. ENBREL [Suspect]
     Indication: PSORIASIS
  3. CALCIUM [Concomitant]
     Dosage: UNK UNK, QD
     Route: 048
  4. TRANDOLAPRIL [Concomitant]
     Dosage: UNK
     Route: 048
  5. VERAPAMIL HCL [Concomitant]
     Dosage: UNK
     Route: 048
  6. VITAMIN D                          /00107901/ [Concomitant]
     Dosage: UNK
     Route: 048

REACTIONS (8)
  - Cataract [Recovered/Resolved]
  - Poor peripheral circulation [Not Recovered/Not Resolved]
  - Gait disturbance [Not Recovered/Not Resolved]
  - Arthropathy [Not Recovered/Not Resolved]
  - Visual impairment [Recovered/Resolved]
  - Fatigue [Unknown]
  - Fall [Unknown]
  - Joint injury [Unknown]
